FAERS Safety Report 25210469 (Version 5)
Quarter: 2025Q3

REPORT INFORMATION
  Report Type: Report from Study
  Country: US (occurrence: US)
  Receive Date: 20250417
  Receipt Date: 20250814
  Transmission Date: 20251021
  Serious: Yes (Other)
  Sender: PFIZER
  Company Number: US-PFIZER INC-PV202500035997

PATIENT
  Age: 58 Year
  Sex: Female

DRUGS (4)
  1. IBRANCE [Suspect]
     Active Substance: PALBOCICLIB
     Indication: Breast cancer female
     Route: 048
     Dates: start: 20250314
  2. IBRANCE [Suspect]
     Active Substance: PALBOCICLIB
     Route: 048
     Dates: start: 20250314
  3. IBRANCE [Suspect]
     Active Substance: PALBOCICLIB
     Route: 048
     Dates: start: 20250314
  4. LETROZOLE [Concomitant]
     Active Substance: LETROZOLE
     Dosage: UNK, DAILY

REACTIONS (6)
  - Adrenal insufficiency [Not Recovered/Not Resolved]
  - Memory impairment [Unknown]
  - Red blood cell count decreased [Unknown]
  - White blood cell count decreased [Unknown]
  - Cough [Not Recovered/Not Resolved]
  - Mean platelet volume decreased [Unknown]

NARRATIVE: CASE EVENT DATE: 20250101
